FAERS Safety Report 8836201 (Version 1)
Quarter: 2012Q4

REPORT INFORMATION
  Report Type: 
  Country: US (occurrence: US)
  Receive Date: 20121011
  Receipt Date: 20121011
  Transmission Date: 20130627
  Serious: Yes (Other)
  Sender: FDA-Public Use
  Company Number: US-UCBSA-068402

PATIENT
  Sex: Female
  Weight: 101 kg

DRUGS (9)
  1. ISOSORBIDE MONONITRATE [Suspect]
     Indication: PRINZMETAL ANGINA
     Dates: start: 2009
  2. ISOSORBIDE MONONITRATE [Suspect]
     Indication: PRINZMETAL ANGINA
     Dates: start: 2012
  3. LORAZEPAM [Concomitant]
     Indication: ANXIETY
  4. LORAZEPAM [Concomitant]
     Indication: PANIC ATTACK
  5. GABAPENTIN [Concomitant]
     Indication: PAIN
  6. ASA [Concomitant]
  7. LOVASA [Concomitant]
  8. AMBIEN [Concomitant]
  9. BUSPAR [Concomitant]
     Indication: BRUXISM

REACTIONS (3)
  - Chest pain [Unknown]
  - Loss of consciousness [Unknown]
  - Drug ineffective [Unknown]
